FAERS Safety Report 5928258-8 (Version None)
Quarter: 2008Q4

REPORT INFORMATION
  Report Type: 
  Country: None (occurrence: None)
  Receive Date: 20081023
  Receipt Date: 20081013
  Transmission Date: 20090506
  Serious: Yes (Hospitalization, Other)
  Sender: FDA-Public Use
  Company Number: US-ELI_LILLY_AND_COMPANY-US200810003000

PATIENT
  Sex: Male

DRUGS (23)
  1. GEMZAR [Suspect]
     Indication: PANCREATIC CARCINOMA
     Dosage: UNK, UNK
     Dates: end: 20080616
  2. CISPLATIN [Concomitant]
     Indication: PANCREATIC CARCINOMA METASTATIC
  3. TARCEVA [Concomitant]
     Indication: PANCREATIC CARCINOMA METASTATIC
     Dosage: 150 MG, DAILY (1/D)
     Dates: end: 20080620
  4. OXALIPLATIN [Concomitant]
     Indication: PANCREATIC CARCINOMA METASTATIC
     Dates: end: 20080616
  5. CARBOPLATIN [Concomitant]
     Indication: PANCREATIC CARCINOMA METASTATIC
  6. AMLODIPINE [Concomitant]
     Dosage: 10 MG, DAILY (1/D)
  7. ATENOLOL [Concomitant]
     Dosage: 100 MG, DAILY (1/D)
  8. VITAMIN B6 [Concomitant]
     Dosage: 200 MG, DAILY (1/D)
  9. CALCIUM WITH VITAMIN D [Concomitant]
     Dosage: 500 MG, DAILY (1/D)
  10. CLINDAMYCIN HCL [Concomitant]
     Dosage: UNK, 3/D
     Route: 061
  11. HYDROCHLOROTHIAZIDE [Concomitant]
     Dosage: 25 MG, DAILY (1/D)
  12. INSULIN [Concomitant]
     Indication: DIABETES MELLITUS
  13. INSULIN GLARGINE [Concomitant]
     Indication: DIABETES MELLITUS
     Dosage: 26 U, DAILY (1/D)
     Route: 058
  14. LISINOPRIL [Concomitant]
     Dosage: 40 MG, DAILY (1/D)
  15. OMEPRAZOLE [Concomitant]
     Dosage: 20 MG, DAILY (1/D)
  16. PANCREASE [Concomitant]
     Dosage: UNK, 4/D
  17. POTASSIUM CHLORIDE [Concomitant]
     Dosage: 20 MEQ, DAILY (1/D)
  18. SIMVASTATIN [Concomitant]
     Dosage: 40 MEQ, DAILY (1/D)
  19. MODAFINIL [Concomitant]
     Dosage: 10 MG, AS NEEDED
  20. ANDROGEL [Concomitant]
     Dosage: UNK, DAILY (1/D)
     Route: 061
  21. MULTI-VITAMINS [Concomitant]
     Dosage: UNK, DAILY (1/D)
  22. ARANESP [Concomitant]
     Dosage: UNK, OTHER
  23. NEULASTA [Concomitant]
     Dosage: UNK, OTHER

REACTIONS (11)
  - BLOOD CALCIUM ABNORMAL [None]
  - BLOOD GLUCOSE ABNORMAL [None]
  - BLOOD MAGNESIUM ABNORMAL [None]
  - DEHYDRATION [None]
  - DIARRHOEA [None]
  - HAEMATOCRIT ABNORMAL [None]
  - HYPOKALAEMIA [None]
  - MALIGNANT NEOPLASM PROGRESSION [None]
  - METABOLIC ACIDOSIS [None]
  - RENAL FAILURE ACUTE [None]
  - VOMITING [None]
